FAERS Safety Report 6259375-3 (Version None)
Quarter: 2009Q3

REPORT INFORMATION
  Report Type: 
  Country: None (occurrence: None)
  Receive Date: 20090706
  Receipt Date: 20090622
  Transmission Date: 20100115
  Serious: Yes (Other)
  Sender: FDA-Public Use
  Company Number: CERZ-1000721

PATIENT
  Age: 61 Year
  Sex: Female
  Weight: 67.1 kg

DRUGS (3)
  1. CEREZYME [Suspect]
     Indication: GAUCHER'S DISEASE
     Dosage: 7600 U, Q2W, INTRAVENOUS
     Route: 042
  2. ANTIDEPRESSANTS [Concomitant]
  3. THYROID THERAPY [Concomitant]

REACTIONS (4)
  - ANAEMIA [None]
  - BONE PAIN [None]
  - WEIGHT BEARING DIFFICULTY [None]
  - WRIST FRACTURE [None]
